FAERS Safety Report 5420730-2 (Version None)
Quarter: 2007Q3

REPORT INFORMATION
  Report Type: 
  Country: None (occurrence: None)
  Receive Date: 20070821
  Receipt Date: 20070821
  Transmission Date: 20080115
  Serious: Yes (Life-Threatening, Other)
  Sender: FDA-Public Use
  Company Number: ID-BAYER-200714801GDS

PATIENT
  Age: 53 Year
  Sex: Female
  Weight: 35 kg

DRUGS (3)
  1. NEXAVAR [Suspect]
     Indication: RENAL CELL CARCINOMA STAGE UNSPECIFIED
     Dosage: TOTAL DAILY DOSE: 800 MG
     Route: 048
     Dates: start: 20061027, end: 20070314
  2. NEXAVAR [Suspect]
     Dosage: TOTAL DAILY DOSE: 400 MG
     Route: 048
     Dates: start: 20061002, end: 20061026
  3. NEXAVAR [Suspect]
     Dosage: TOTAL DAILY DOSE: 800 MG
     Route: 048
     Dates: start: 20060911, end: 20061001

REACTIONS (6)
  - ABDOMINAL PAIN [None]
  - ALOPECIA [None]
  - ASTHENIA [None]
  - BLISTER [None]
  - NAUSEA [None]
  - PRURITUS [None]
